FAERS Safety Report 15590277 (Version 2)
Quarter: 2019Q2

REPORT INFORMATION
  Report Type: Report from Study
  Country: US (occurrence: US)
  Receive Date: 20181106
  Receipt Date: 20190425
  Transmission Date: 20190711
  Serious: Yes (Hospitalization)
  Sender: FDA-Public Use
  Company Number: US-ROCHE-2195557

PATIENT
  Age: 61 Year
  Sex: Male
  Weight: 83.2 kg

DRUGS (9)
  1. CC-122 [Suspect]
     Active Substance: AVADOMIDE
     Dosage: (5/7 SCHEDULE)
     Route: 048
     Dates: start: 20181004, end: 20181005
  2. ALLOPURINOL. [Concomitant]
     Active Substance: ALLOPURINOL
     Route: 048
     Dates: start: 20180323, end: 20180719
  3. RITUXIMAB. [Suspect]
     Active Substance: RITUXIMAB
     Indication: B-CELL LYMPHOMA
     Dosage: INTRAVENOUS, 375 MG/M^2, ONCE IN 28 DAYS (FROM PROTOCOL)
     Route: 042
     Dates: start: 20180104, end: 20180124
  4. TURMERIC [CURCUMA LONGA] [Concomitant]
     Indication: PROPHYLAXIS
     Dosage: 3 CAPSULES
     Route: 048
     Dates: start: 20180906
  5. LORATADINE. [Concomitant]
     Active Substance: LORATADINE
     Indication: PROPHYLAXIS
     Route: 048
     Dates: start: 20180719
  6. RITUXIMAB. [Suspect]
     Active Substance: RITUXIMAB
     Dosage: 3 MONTHS PER CYCLE 9
     Route: 042
     Dates: start: 20180809, end: 20180905
  7. OMEPRAZOLE. [Concomitant]
     Active Substance: OMEPRAZOLE
     Indication: PROPHYLAXIS
     Route: 048
     Dates: start: 20180712
  8. CC-122 [Suspect]
     Active Substance: AVADOMIDE
     Indication: B-CELL LYMPHOMA
     Dosage: ORAL, ONCE DAILY (FROM PROTOCOL)?3 MG ORAL (5/7 SCHEDULE)
     Route: 048
     Dates: start: 20171228, end: 20180124
  9. ALLOPURINOL. [Concomitant]
     Active Substance: ALLOPURINOL
     Indication: PROPHYLAXIS
     Route: 048
     Dates: start: 20171226, end: 20180125

REACTIONS (1)
  - Pneumonitis [Recovered/Resolved]

NARRATIVE: CASE EVENT DATE: 20180330
